FAERS Safety Report 8466761-X (Version None)
Quarter: 2012Q2

REPORT INFORMATION
  Report Type: 
  Country: None (occurrence: None)
  Receive Date: 20120626
  Receipt Date: 20120620
  Transmission Date: 20120825
  Serious: Yes (Hospitalization)
  Sender: FDA-Public Use
  Company Number: US-PFIZER INC-2012149243

PATIENT
  Sex: Male
  Weight: 68.481 kg

DRUGS (5)
  1. PREDNISONE [Concomitant]
     Dosage: 5 MG, 3X/DAY
  2. DILANTIN [Concomitant]
     Dosage: 100 MG, 2X/DAY
  3. ZITHROMAX [Suspect]
     Indication: RESPIRATORY TRACT INFECTION
     Dosage: 250 MG, 2X/DAY
     Route: 048
     Dates: start: 20110420, end: 20110424
  4. PROPRANOLOL [Concomitant]
     Dosage: 40 MG, 2X/DAY
  5. CITALOPRAM [Concomitant]
     Dosage: 40 MG, 1X/DAY

REACTIONS (2)
  - HYPERSENSITIVITY [None]
  - LIVER DISORDER [None]
